FAERS Safety Report 16661595 (Version 3)
Quarter: 2019Q3

REPORT INFORMATION
  Report Type: Spontaneous
  Country: US (occurrence: US)
  Receive Date: 20190802
  Receipt Date: 20190916
  Transmission Date: 20191004
  Serious: Yes (Death, Hospitalization, Other)
  Sender: FDA-Public Use
  Company Number: US-PFIZER INC-2019332358

PATIENT
  Age: 66 Year
  Sex: Male

DRUGS (1)
  1. ADVIL [Suspect]
     Active Substance: IBUPROFEN
     Indication: PAIN
     Dosage: 200 MG, AS NEEDED
     Route: 048
     Dates: start: 201506, end: 201508

REACTIONS (4)
  - Pancreatic carcinoma [Unknown]
  - Hepatic cirrhosis [Fatal]
  - Nonalcoholic fatty liver disease [Unknown]
  - Hepatic failure [Unknown]

NARRATIVE: CASE EVENT DATE: 20151007
